FAERS Safety Report 9647026 (Version 1)
Quarter: 2013Q4

REPORT INFORMATION
  Report Type: Spontaneous
  Country: US (occurrence: US)
  Receive Date: 20131027
  Receipt Date: 20131027
  Transmission Date: 20140711
  Serious: No
  Sender: FDA-Public Use
  Company Number: US-PURDUE-USA-2013-0104318

PATIENT
  Age: 60 Year
  Sex: Female
  Weight: 131.52 kg

DRUGS (13)
  1. OXYCONTIN (NDA 22-272) [Suspect]
     Indication: NEUROPATHY PERIPHERAL
     Dosage: 10 MG, BID
     Route: 048
     Dates: start: 200603
  2. OXYCONTIN (NDA 22-272) [Suspect]
     Indication: PAIN
  3. CYMBALTA [Concomitant]
     Indication: NEUROPATHY PERIPHERAL
     Dosage: 60 MG, BID
  4. CENTRUM                            /00554501/ [Concomitant]
     Indication: SUPPLEMENTATION THERAPY
  5. LANTUS [Concomitant]
     Indication: DIABETES MELLITUS
     Dosage: 85 UNIT, UNK
  6. GLUCOPHAGE [Concomitant]
     Indication: DIABETES MELLITUS
     Dosage: 1000 MG, BID
  7. LIPITOR [Concomitant]
     Indication: PRODUCT USED FOR UNKNOWN INDICATION
     Dosage: 80 MG, UNK
  8. VESICARE [Concomitant]
     Indication: URINARY INCONTINENCE
     Dosage: 10 MG, UNK
  9. CELEBREX [Concomitant]
     Indication: ARTHRITIS
     Dosage: 200 MG, BID
  10. PRAMIPEXOLE DIHYDROCHLORIDE [Concomitant]
     Indication: RESTLESS LEGS SYNDROME
     Dosage: 0.5 MG, UNK
  11. PROTONIX [Concomitant]
     Indication: GASTROOESOPHAGEAL REFLUX DISEASE
     Dosage: 40 MG, UNK
  12. ASPIRIN [Concomitant]
     Indication: PRODUCT USED FOR UNKNOWN INDICATION
     Dosage: 81 MG, UNK
  13. LOSARTAN POTASSIUM [Concomitant]
     Indication: HYPERTENSION
     Dosage: 100 MG, UNK

REACTIONS (1)
  - Drug ineffective [Unknown]
